FAERS Safety Report 8577202-6 (Version None)
Quarter: 2012Q2

REPORT INFORMATION
  Report Type: 
  Country: None (occurrence: None)
  Receive Date: 20120423
  Receipt Date: 20100217
  Transmission Date: 20120825
  Serious: Yes (Other)
  Sender: FDA-Public Use
  Company Number: PHEH2010US00543

PATIENT
  Age: 83 Year
  Sex: Male

DRUGS (15)
  1. ADVAIR HFA [Concomitant]
  2. ALLEGRA [Concomitant]
  3. SINGULAIR [Concomitant]
  4. ESTER-C (CALCIUM ASCORBATE) [Concomitant]
  5. PROVENTIL [Concomitant]
  6. TERAZOSIN HCL [Concomitant]
  7. SUCRALFATE [Concomitant]
  8. FUROSEMIDE [Concomitant]
  9. PACERONE [Concomitant]
  10. BLOOD TRANSFUSION, AUXILIARY PRODUCTS (NO INGREDIENTS/SUBSTANCES) [Concomitant]
  11. ASPIRIN [Concomitant]
  12. CALCIUM CARBONATE [Concomitant]
  13. VITAMIN D [Concomitant]
  14. EXJADE [Suspect]
     Dosage: 1500 MG, QD, ORAL
     Route: 048
     Dates: start: 20090922, end: 20091202
  15. CALCITRIOL [Concomitant]

REACTIONS (14)
  - GLOMERULAR FILTRATION RATE INCREASED [None]
  - MEAN CELL VOLUME DECREASED [None]
  - RENAL FAILURE [None]
  - HAEMOGLOBIN DECREASED [None]
  - RED CELL DISTRIBUTION WIDTH INCREASED [None]
  - WHITE BLOOD CELL COUNT DECREASED [None]
  - MEAN PLATELET VOLUME DECREASED [None]
  - MEAN CELL HAEMOGLOBIN CONCENTRATION INCREASED [None]
  - RED BLOOD CELL COUNT DECREASED [None]
  - SERUM FERRITIN DECREASED [None]
  - BLOOD UREA INCREASED [None]
  - PROTEIN TOTAL DECREASED [None]
  - HAEMATOCRIT DECREASED [None]
  - BLOOD CALCIUM DECREASED [None]
